FAERS Safety Report 24998795 (Version 1)
Quarter: 2025Q1

REPORT INFORMATION
  Report Type: Spontaneous
  Country: US (occurrence: US)
  Receive Date: 20250222
  Receipt Date: 20250222
  Transmission Date: 20250409
  Serious: No
  Sender: SANOFI AVENTIS
  Company Number: US-SANOFI-02410882

PATIENT
  Age: 49 Year
  Sex: Female

DRUGS (1)
  1. DUPIXENT [Suspect]
     Active Substance: DUPILUMAB
     Indication: Nasal polyps
     Dates: start: 2023

REACTIONS (12)
  - Headache [Unknown]
  - Oropharyngeal pain [Unknown]
  - Pain [Unknown]
  - Aphonia [Recovering/Resolving]
  - Rhinorrhoea [Unknown]
  - Sinusitis [Unknown]
  - Cough [Unknown]
  - Illness [Unknown]
  - Condition aggravated [Unknown]
  - COVID-19 [Unknown]
  - Insomnia [Unknown]
  - Infection [Unknown]

NARRATIVE: CASE EVENT DATE: 20250201
